FAERS Safety Report 4663571-6 (Version None)
Quarter: 2005Q2

REPORT INFORMATION
  Report Type: 
  Country: None (occurrence: None)
  Receive Date: 20050511
  Receipt Date: 20050301
  Transmission Date: 20051028
  Serious: No
  Sender: FDA-Public Use
  Company Number: 397282

PATIENT
  Sex: Female

DRUGS (3)
  1. PEGASYS [Suspect]
     Indication: DRUG USE FOR UNKNOWN INDICATION
     Dosage: OTHER
     Route: 050
     Dates: start: 20040515
  2. COPEGUS [Suspect]
     Indication: DRUG USE FOR UNKNOWN INDICATION
     Dosage: ORAL
     Route: 048
     Dates: start: 20040515
  3. UNSPECIFIED MEDICATION (GENERIC UNKNOWN) [Concomitant]

REACTIONS (3)
  - ABDOMINAL WALL ABSCESS [None]
  - DISEASE RECURRENCE [None]
  - NECROSIS [None]
